FAERS Safety Report 13934038 (Version 2)
Quarter: 2017Q4

REPORT INFORMATION
  Report Type: Report from Study
  Country: US (occurrence: US)
  Receive Date: 20170904
  Receipt Date: 20171010
  Transmission Date: 20180320
  Serious: Yes (Hospitalization)
  Sender: FDA-Public Use
  Company Number: US-B.I. PHARMACEUTICALS,INC./RIDGEFIELD-2017-BI-007332

PATIENT
  Sex: Female
  Weight: 48.08 kg

DRUGS (4)
  1. OFEV [Suspect]
     Active Substance: NINTEDANIB
     Indication: IDIOPATHIC PULMONARY FIBROSIS
     Route: 048
     Dates: start: 20170110
  2. OFEV [Suspect]
     Active Substance: NINTEDANIB
     Route: 065
  3. OFEV [Suspect]
     Active Substance: NINTEDANIB
     Route: 048
  4. AMLODIPINE [Concomitant]
     Active Substance: AMLODIPINE BESYLATE
     Indication: PRODUCT USED FOR UNKNOWN INDICATION
     Route: 065

REACTIONS (12)
  - Malnutrition [Unknown]
  - Feeling abnormal [Unknown]
  - Pruritus [Unknown]
  - Asthenia [Unknown]
  - Dyspnoea [Unknown]
  - Productive cough [Unknown]
  - Dyspnoea exertional [Unknown]
  - Dry skin [Unknown]
  - Decreased appetite [Unknown]
  - Liver function test abnormal [Unknown]
  - Bronchitis [Unknown]
  - Diarrhoea [Unknown]
